FAERS Safety Report 23874080 (Version 1)
Quarter: 2024Q2

REPORT INFORMATION
  Report Type: Spontaneous
  Country: US (occurrence: None)
  Receive Date: 20240517
  Receipt Date: 20240517
  Transmission Date: 20240716
  Serious: Yes (Other)
  Sender: FDA-Public Use
  Company Number: None

PATIENT
  Age: 65 Year
  Sex: Male

DRUGS (10)
  1. VELTASSA [Suspect]
     Active Substance: PATIROMER
     Indication: Hyperkalaemia
     Dosage: FREQ: MIX ONE PACKET AND TAKE BY MOUTH ONCE A DAY
     Route: 048
     Dates: start: 20220408
  2. AMLODIPINE [Concomitant]
     Active Substance: AMLODIPINE BESYLATE
  3. ASPIRIN [Concomitant]
     Active Substance: ASPIRIN
  4. BASAGLAR [Concomitant]
     Active Substance: INSULIN GLARGINE
  5. CARVEDILOL [Concomitant]
     Active Substance: CARVEDILOL
  6. CLONIDINE [Concomitant]
     Active Substance: CLONIDINE
  7. COENZYME Q10 [Concomitant]
     Active Substance: DIETARY SUPPLEMENT\UBIDECARENONE
  8. ELIQUIS [Concomitant]
     Active Substance: APIXABAN
  9. LISINOPRIL [Concomitant]
     Active Substance: LISINOPRIL
  10. NIFEDIPINE [Concomitant]
     Active Substance: NIFEDIPINE

REACTIONS (2)
  - Renal transplant [None]
  - Therapy cessation [None]

NARRATIVE: CASE EVENT DATE: 20240414
